FAERS Safety Report 9475244 (Version 1)
Quarter: 2013Q3

REPORT INFORMATION
  Report Type: Spontaneous
  Country: CA (occurrence: CA)
  Receive Date: 20130825
  Receipt Date: 20130825
  Transmission Date: 20140515
  Serious: Yes (Other)
  Sender: FDA-Public Use
  Company Number: CA-JNJFOC-20130806713

PATIENT
  Sex: Female

DRUGS (1)
  1. VISINE ALLERGY [Suspect]
     Indication: PRODUCT USED FOR UNKNOWN INDICATION
     Dosage: 1 - 2 DROPS PER DAY FOR 3 DAYS
     Route: 047

REACTIONS (7)
  - Pupil fixed [Unknown]
  - Amblyopia [Unknown]
  - Lacrimation increased [Unknown]
  - Dry eye [Unknown]
  - Miosis [Unknown]
  - Eye movement disorder [Unknown]
  - Drug ineffective [Unknown]
